FAERS Safety Report 12653107 (Version 4)
Quarter: 2017Q2

REPORT INFORMATION
  Report Type: Report from Study
  Country: CA (occurrence: CA)
  Receive Date: 20160815
  Receipt Date: 20170501
  Transmission Date: 20170830
  Serious: Yes (Death, Hospitalization)
  Sender: FDA-Public Use
  Company Number: CA-HLSUS-2016-CA-000373

PATIENT
  Age: 46 Year
  Sex: Female

DRUGS (3)
  1. CLOZARIL [Suspect]
     Active Substance: CLOZAPINE
     Indication: SCHIZOPHRENIA
     Dosage: 400 MG DAILY
     Route: 048
     Dates: start: 19930221, end: 20170109
  2. EPIVAL [Concomitant]
     Active Substance: DIVALPROEX SODIUM
     Dosage: 500 MG AT BED TIME
     Route: 048
  3. CITALOPRAM [Concomitant]
     Active Substance: CITALOPRAM HYDROBROMIDE
     Dosage: 10 MG DAILY
     Route: 048

REACTIONS (2)
  - Acute leukaemia [Fatal]
  - Lymphoma [Unknown]

NARRATIVE: CASE EVENT DATE: 2006
